FAERS Safety Report 18517177 (Version 1)
Quarter: 2020Q4

REPORT INFORMATION
  Report Type: Spontaneous
  Country: CN (occurrence: CN)
  Receive Date: 20201118
  Receipt Date: 20201118
  Transmission Date: 20210114
  Serious: Yes (Hospitalization)
  Sender: FDA-Public Use
  Company Number: NVSC2020CN303746

PATIENT
  Age: 47 Year
  Sex: Female

DRUGS (1)
  1. LOTENSIN [Suspect]
     Active Substance: BENAZEPRIL HYDROCHLORIDE
     Indication: VENTRICULAR REMODELLING
     Dosage: 5 MG, QD
     Route: 048
     Dates: start: 20200818, end: 20200818

REACTIONS (2)
  - Haemoptysis [Recovering/Resolving]
  - Cough [Recovering/Resolving]

NARRATIVE: CASE EVENT DATE: 20200818
